FAERS Safety Report 5607853-X (Version None)
Quarter: 2008Q1

REPORT INFORMATION
  Report Type: 
  Country: None (occurrence: None)
  Receive Date: 20080130
  Receipt Date: 20070925
  Transmission Date: 20080703
  Serious: No
  Sender: FDA-Public Use
  Company Number: US-BAYER-200713446BWH

PATIENT
  Age: 42 Year
  Sex: Male

DRUGS (1)
  1. NEXAVAR [Suspect]
     Indication: HEPATIC CANCER METASTATIC
     Dosage: TOTAL DAILY DOSE: 800 MG  UNIT DOSE: 200 MG
     Route: 048

REACTIONS (6)
  - CHEST PAIN [None]
  - GLOSSODYNIA [None]
  - NAUSEA [None]
  - POOR QUALITY SLEEP [None]
  - PRODUCTIVE COUGH [None]
  - SKIN REACTION [None]
